FAERS Safety Report 21935240 (Version 1)
Quarter: 2023Q1

REPORT INFORMATION
  Report Type: Spontaneous
  Country: GB (occurrence: GB)
  Receive Date: 20230201
  Receipt Date: 20230201
  Transmission Date: 20230417
  Serious: Yes (Disabling, Other)
  Sender: FDA-Public Use
  Company Number: None

PATIENT
  Age: 57 Year
  Sex: Male

DRUGS (1)
  1. APIXABAN [Suspect]
     Active Substance: APIXABAN
     Indication: Product used for unknown indication
     Dosage: 2.5 MG BD
     Dates: start: 20210401, end: 20220715

REACTIONS (7)
  - Lethargy [Recovered/Resolved]
  - Loss of libido [Recovered/Resolved]
  - Skin injury [Recovered/Resolved]
  - Abdominal pain upper [Recovered/Resolved]
  - Cough [Recovered/Resolved]
  - Abnormal loss of weight [Recovered/Resolved]
  - Mood altered [Recovered/Resolved]
